FAERS Safety Report 7097859-9 (Version None)
Quarter: 2010Q4

REPORT INFORMATION
  Report Type: 
  Country: None (occurrence: None)
  Receive Date: 20101103
  Receipt Date: 20101020
  Transmission Date: 20110411
  Serious: Yes (Hospitalization, Other)
  Sender: FDA-Public Use
  Company Number: 019985

PATIENT
  Sex: Female
  Weight: 64 kg

DRUGS (7)
  1. ROTIGOTINE (ROTIGOTINE) [Suspect]
     Indication: PARKINSON'S DISEASE
     Dosage: (4 MG QD TRANSDERMAL)
     Route: 062
     Dates: start: 20100721, end: 20100901
  2. ROMPARKIN (ROMPARKIN) (NOT SPECIFIED) [Suspect]
     Indication: PARKINSON'S DISEASE
     Dosage: (2 MG TID)
     Dates: start: 19970901
  3. VIREGYT-K (VIREGYT) [Suspect]
     Indication: PARKINSON'S DISEASE
     Dosage: (100 MG BID)
     Dates: start: 20051004, end: 20100901
  4. REQUIP [Suspect]
     Indication: PARKINSON'S DISEASE
     Dosage: (1 G TID)
     Dates: start: 20061102, end: 20100701
  5. PIRACETAM [Concomitant]
  6. STUGERON [Concomitant]
  7. STILNOX /00914901/ [Concomitant]

REACTIONS (1)
  - PYELONEPHRITIS [None]
